FAERS Safety Report 21968760 (Version 1)
Quarter: 2023Q1

REPORT INFORMATION
  Report Type: Spontaneous
  Country: US (occurrence: US)
  Receive Date: 20230208
  Receipt Date: 20230208
  Transmission Date: 20230417
  Serious: No
  Sender: FDA-Public Use
  Company Number: US-INCYTE CORPORATION-2022IN011721

PATIENT

DRUGS (2)
  1. PEMAZYRE [Suspect]
     Active Substance: PEMIGATINIB
     Indication: Cholangiocarcinoma
     Dosage: 13.5 MILLIGRAM
     Route: 065
  2. PEPCID [Suspect]
     Active Substance: FAMOTIDINE
     Indication: Gastric pH decreased
     Route: 065

REACTIONS (4)
  - Gastric pH decreased [Not Recovered/Not Resolved]
  - Skin disorder [Not Recovered/Not Resolved]
  - Carbohydrate antigen 19-9 increased [Recovered/Resolved]
  - Onycholysis [Not Recovered/Not Resolved]
